FAERS Safety Report 4894954-7 (Version None)
Quarter: 2006Q1

REPORT INFORMATION
  Report Type: 
  Country: None (occurrence: None)
  Receive Date: 20060130
  Receipt Date: 20050509
  Transmission Date: 20060701
  Serious: No
  Sender: FDA-Public Use
  Company Number: US-BRISTOL-MYERS SQUIBB COMPANY-12960498

PATIENT
  Sex: Male

DRUGS (3)
  1. METFORMIN HCL [Suspect]
  2. ACTOS [Suspect]
  3. LIPITOR [Suspect]

REACTIONS (1)
  - ALANINE AMINOTRANSFERASE INCREASED [None]
